FAERS Safety Report 10524168 (Version 2)
Quarter: 2014Q4

REPORT INFORMATION
  Report Type: Spontaneous
  Country: US (occurrence: None)
  Receive Date: 20141015
  Receipt Date: 20141125
  Transmission Date: 20150528
  Serious: Yes (Death)
  Sender: FDA-Public Use
  Company Number: US-H14001-14-01061

PATIENT
  Age: 63 Year
  Sex: Female
  Weight: 93.44 kg

DRUGS (21)
  1. INFUMORPH [Suspect]
     Active Substance: MORPHINE SULFATE
     Indication: MONARTHRITIS
     Dosage: (0.15 MG, 1 IN 4)
     Route: 037
     Dates: start: 20140925
  2. BENAZEPRIL HCL (BENAZEPRIL HYDROCHLORIDE) [Concomitant]
  3. DULCOLAX STOOL SOFTENER (DOCUSATE SODIUM) [Concomitant]
  4. ASPIR-LOW (ACETYLSALICYLIC ACID) [Concomitant]
  5. SYMBICORT (BUDESONIDE W/FORMOTEROL FUMARATE) (FORMOTEROL FUMARATE, BUDENOSIDE) [Concomitant]
  6. PERCOCET (TYLOX) (PARACETAMOL, OXYCODONE HYDROCHLORIDE, OXYCODONE TEREPHTHALATE) [Concomitant]
  7. BUDESONIDE (BUDESONIDE) [Concomitant]
     Active Substance: BUDESONIDE
  8. MULTIVITAMINS (MULTIVITAMINS) [Concomitant]
     Active Substance: VITAMINS
  9. INFUMORPH [Suspect]
     Active Substance: MORPHINE SULFATE
     Indication: INTERVERTEBRAL DISC DEGENERATION
     Dosage: (0.15 MG, 1 IN 4)
     Route: 037
     Dates: start: 20140925
  10. INFUMORPH [Suspect]
     Active Substance: MORPHINE SULFATE
     Indication: SPINAL COLUMN STENOSIS
     Dosage: (0.15 MG, 1 IN 4)
     Route: 037
     Dates: start: 20140925
  11. FUROSEMIDE (FUROSEMIDE) [Concomitant]
     Active Substance: FUROSEMIDE
  12. METOPROLOL (METOPROLOL) [Concomitant]
     Active Substance: METOPROLOL
  13. OMEGA3 ACID ETHYL ESTERS (OMEGA 3 ACID ETHYL ESTER) [Concomitant]
  14. IPRAT-ALBUT (COMBIVENT) (IPRATROPIUM BROMIDE, SALBUTAMOL SULFATE) [Concomitant]
  15. SERTRALINE HCL (SERTRALINE HYDROCHLORIDE) [Concomitant]
  16. OXYGEN (OXYGEN) [Concomitant]
     Active Substance: OXYGEN
  17. MOTRIN [Concomitant]
     Active Substance: IBUPROFEN
  18. ZOCOR (SIMVASTATIN) (SIMVASTATIN) [Concomitant]
  19. ZOLPIDEM TARTRATE (ZOLPIDEM TARTRATE) [Concomitant]
     Active Substance: ZOLPIDEM TARTRATE
  20. IRON (IRON) [Concomitant]
     Active Substance: IRON
  21. ANESTHETIC [Suspect]
     Active Substance: BENZOCAINE\LIDOCAINE HYDROCHLORIDE
     Indication: GENERAL ANAESTHESIA
     Dates: start: 20140925

REACTIONS (12)
  - Arteriosclerosis [None]
  - Fungal infection [None]
  - Pulmonary oedema [None]
  - Cholestasis [None]
  - Unresponsive to stimuli [None]
  - Emphysema [None]
  - Nephrosclerosis [None]
  - Death [None]
  - Glomerulosclerosis [None]
  - Hypertension [None]
  - Pulmonary congestion [None]
  - Device dislocation [None]
